FAERS Safety Report 17874898 (Version 1)
Quarter: 2020Q2

REPORT INFORMATION
  Report Type: Spontaneous
  Country: US (occurrence: US)
  Receive Date: 20200608
  Receipt Date: 20200608
  Transmission Date: 20200714
  Serious: Yes (Hospitalization, Disabling, Other)
  Sender: FDA-Public Use
  Company Number: None

PATIENT
  Age: 39 Year
  Sex: Male
  Weight: 80 kg

DRUGS (1)
  1. CIPROFLOXACIN 750MG [Suspect]
     Active Substance: CIPROFLOXACIN
     Indication: PROSTATITIS
     Dosage: ?          QUANTITY:30 TABLET(S);?
     Route: 048
     Dates: start: 20190314, end: 20190423

REACTIONS (6)
  - Tendon pain [None]
  - Gait disturbance [None]
  - Hyperhidrosis [None]
  - Loss of personal independence in daily activities [None]
  - Nervous system disorder [None]
  - Tremor [None]

NARRATIVE: CASE EVENT DATE: 20190505
